FAERS Safety Report 20347689 (Version 1)
Quarter: 2022Q1

REPORT INFORMATION
  Report Type: Spontaneous
  Country: CN (occurrence: CN)
  Receive Date: 20220118
  Receipt Date: 20220118
  Transmission Date: 20220423
  Serious: Yes (Other)
  Sender: FDA-Public Use
  Company Number: CN-BAYER-2022A005842

PATIENT
  Age: 51 Year
  Sex: Female
  Weight: 60 kg

DRUGS (2)
  1. AVELOX [Suspect]
     Active Substance: MOXIFLOXACIN HYDROCHLORIDE
     Indication: Pneumonia
     Dosage: 0.4 G, QD
     Route: 041
     Dates: start: 20211226, end: 20220104
  2. AMOXICILLIN AND CLAVULANATE POTASSIUM [AMOXICILLIN TRIHYDRATE;CLAV [Concomitant]
     Indication: Pneumonia
     Dosage: 0.9 G, BID
     Route: 041
     Dates: start: 20211226, end: 20211230

REACTIONS (2)
  - Myelosuppression [Recovering/Resolving]
  - Neutrophil count decreased [Recovering/Resolving]

NARRATIVE: CASE EVENT DATE: 20211230
